FAERS Safety Report 18459235 (Version 1)
Quarter: 2020Q4

REPORT INFORMATION
  Report Type: Spontaneous
  Country: FR (occurrence: FR)
  Receive Date: 20201103
  Receipt Date: 20201103
  Transmission Date: 20210114
  Serious: Yes (Other)
  Sender: FDA-Public Use
  Company Number: FR-PFIZER INC-2020426799

PATIENT
  Age: 73 Year
  Sex: Male
  Weight: 93 kg

DRUGS (3)
  1. MEKTOVI [Suspect]
     Active Substance: BINIMETINIB
     Indication: MALIGNANT MELANOMA
     Dosage: 6 DF/DAY
     Route: 048
     Dates: start: 202004, end: 20200824
  2. BRAFTOVI [Suspect]
     Active Substance: ENCORAFENIB
     Indication: MALIGNANT MELANOMA
     Dosage: 4 DF/DAY
     Route: 048
     Dates: start: 202004, end: 20200824
  3. KEYTRUDA [Suspect]
     Active Substance: PEMBROLIZUMAB
     Indication: MALIGNANT MELANOMA
     Dosage: 2 MG/KG (THRICE A WEEK)
     Route: 042
     Dates: start: 20190731, end: 202003

REACTIONS (2)
  - Interstitial lung disease [Recovering/Resolving]
  - Transient acantholytic dermatosis [Recovering/Resolving]

NARRATIVE: CASE EVENT DATE: 202007
